FAERS Safety Report 11103966 (Version 1)
Quarter: 2015Q2

REPORT INFORMATION
  Report Type: Spontaneous
  Country: DK (occurrence: None)
  Receive Date: 20150507
  Receipt Date: 20150507
  Transmission Date: 20150821
  Serious: Yes (Hospitalization)
  Sender: FDA-Public Use
  Company Number: DK-DEXPHARM-20150305

PATIENT
  Age: 62 Year
  Sex: Male

DRUGS (2)
  1. PENICILLIN [Suspect]
     Active Substance: PENICILLIN
  2. DICLOFENAC [Suspect]
     Active Substance: DICLOFENAC

REACTIONS (1)
  - Linear IgA disease [None]
